FAERS Safety Report 8037402-0 (Version None)
Quarter: 2012Q1

REPORT INFORMATION
  Report Type: 
  Country: None (occurrence: None)
  Receive Date: 20120111
  Receipt Date: 20120103
  Transmission Date: 20120608
  Serious: Yes (Hospitalization, Disabling, Other)
  Sender: FDA-Public Use
  Company Number: US-ELI_LILLY_AND_COMPANY-US201108008073

PATIENT
  Sex: Female

DRUGS (26)
  1. FAMOTIDINE [Concomitant]
  2. LANTUS [Concomitant]
  3. CYMBALTA [Suspect]
     Indication: DEPRESSION
     Dosage: 60 MG, QD
  4. OXYGEN [Concomitant]
     Dosage: 3 L, UNK
     Dates: start: 20040101
  5. NOVOLOG [Concomitant]
  6. ASPIRIN [Concomitant]
     Dosage: 81 MG, UNK
  7. DIOVAN [Concomitant]
  8. POLYETHYLENE GLYCOL [Concomitant]
  9. OXYCODONE HCL [Concomitant]
     Dosage: 10 MG, EVERY 4 HRS
  10. STOOL SOFTENER [Concomitant]
  11. FERROUS SULFATE TAB [Concomitant]
  12. FLUTICASONE PROPIONATE [Concomitant]
     Route: 045
  13. ISOSORBIDE DINITRATE [Concomitant]
  14. SIMVASTATIN [Concomitant]
  15. SINGULAIR [Concomitant]
  16. FORTEO [Suspect]
     Indication: OSTEOPOROSIS
     Dosage: UNK, UNKNOWN
     Route: 065
     Dates: start: 20110630
  17. LORATADINE [Concomitant]
  18. AMLODIPINE BESYLATE [Concomitant]
     Dosage: 10 MG, UNK
  19. BUPROPION HCL [Concomitant]
     Dosage: 150 MG, UNK
  20. FUROSEMIDE [Concomitant]
  21. NEXIUM [Concomitant]
  22. FORTEO [Suspect]
     Dosage: 20 UG, QD
  23. ALBUTEROL [Concomitant]
  24. PROVIGIL [Concomitant]
  25. EVISTA [Suspect]
     Indication: OSTEOPOROSIS
     Dosage: 60 MG, QD
     Dates: start: 20110401
  26. MULTI-VITAMIN [Concomitant]

REACTIONS (11)
  - UPPER LIMB FRACTURE [None]
  - FALL [None]
  - BONE DISORDER [None]
  - BLOOD MAGNESIUM DECREASED [None]
  - URINARY TRACT INFECTION [None]
  - ARTHRALGIA [None]
  - DEHYDRATION [None]
  - AMNESIA [None]
  - MALAISE [None]
  - MUSCULAR WEAKNESS [None]
  - MUSCULOSKELETAL DISORDER [None]
